FAERS Safety Report 8593142 (Version 5)
Quarter: 2014Q1

REPORT INFORMATION
  Report Type: Spontaneous
  Country: US (occurrence: US)
  Receive Date: 20120604
  Receipt Date: 20140127
  Transmission Date: 20141002
  Serious: Yes (Hospitalization)
  Sender: FDA-Public Use
  Company Number: US-ASTRAZENECA-2012SE34871

PATIENT
  Sex: Male

DRUGS (12)
  1. NEXIUM [Suspect]
     Route: 048
  2. NEXIUM [Suspect]
     Route: 048
     Dates: start: 20110112
  3. NEXIUM [Suspect]
     Route: 048
     Dates: start: 20120220
  4. PREVACID [Concomitant]
  5. HYDROCODONE-ACETAMINOP [Concomitant]
     Dosage: 7.5-750 TABS
     Dates: start: 20110112
  6. NISOLDIPINE [Concomitant]
     Dates: start: 20110112
  7. SIMVASTATIN [Concomitant]
     Dates: start: 20110112
  8. TIZANIDINE HCL [Concomitant]
     Dates: start: 20110112
  9. DICLOFENAC POTASSIUM [Concomitant]
     Dates: start: 20110112
  10. DIAZEPAM [Concomitant]
     Route: 048
     Dates: start: 20110112
  11. XANAX [Concomitant]
     Dosage: 2 MG, THREE TIMES A DAY, AS NEEDED
     Route: 048
     Dates: start: 20130904
  12. HYDROCODONE [Concomitant]

REACTIONS (4)
  - Hip deformity [Unknown]
  - Osteoporosis [Unknown]
  - Multiple fractures [Unknown]
  - Diarrhoea [Unknown]
